FAERS Safety Report 10770033 (Version 5)
Quarter: 2015Q4

REPORT INFORMATION
  Report Type: Report from Study
  Country: US (occurrence: US)
  Receive Date: 20150206
  Receipt Date: 20151217
  Transmission Date: 20160304
  Serious: Yes (Hospitalization)
  Sender: FDA-Public Use
  Company Number: US-PFIZER INC-2015041525

PATIENT
  Age: 59 Year
  Sex: Female
  Weight: 59 kg

DRUGS (3)
  1. FEMARA [Suspect]
     Active Substance: LETROZOLE
     Indication: BREAST CANCER METASTATIC
     Dosage: 2.5 MG, 1X/DAY
     Route: 048
     Dates: start: 20141114, end: 20150126
  2. PALBOCICLIB [Suspect]
     Active Substance: PALBOCICLIB
     Indication: BREAST CANCER METASTATIC
     Dosage: 125 MG, CYCLIC (ONCE DALIY, 3 WEEKS ON/ 1 WEEK OFF EVERY 28 DAY CYCLE)
     Route: 048
     Dates: start: 20141114, end: 20150111
  3. AZITHROMYCIN [Concomitant]
     Active Substance: AZITHROMYCIN ANHYDROUS
     Indication: SINUSITIS
     Dosage: 500 MG, 1X/DAY
     Route: 048
     Dates: start: 20141030, end: 20141111

REACTIONS (4)
  - Hepatic enzyme abnormal [Not Recovered/Not Resolved]
  - Intestinal dilatation [Recovered/Resolved with Sequelae]
  - Gastrointestinal toxicity [Recovered/Resolved with Sequelae]
  - Clostridium difficile colitis [Recovered/Resolved with Sequelae]

NARRATIVE: CASE EVENT DATE: 20150112
